FAERS Safety Report 10985106 (Version 1)
Quarter: 2015Q2

REPORT INFORMATION
  Report Type: Spontaneous
  Country: IN (occurrence: IN)
  Receive Date: 20150404
  Receipt Date: 20150404
  Transmission Date: 20150821
  Serious: Yes (Other)
  Sender: FDA-Public Use
  Company Number: PHHY2015IN030158

PATIENT
  Age: 53 Year
  Sex: Female

DRUGS (5)
  1. RAMIPRIL. [Concomitant]
     Active Substance: RAMIPRIL
     Indication: HYPERTENSION
     Dosage: 5 MG, QD
     Route: 065
  2. METFORMIN [Suspect]
     Active Substance: METFORMIN HYDROCHLORIDE
     Indication: DIABETES MELLITUS
     Dosage: 500 MG, QD
     Route: 065
  3. METHOTREXATE [Suspect]
     Active Substance: METHOTREXATE
     Indication: RHEUMATOID ARTHRITIS
     Dosage: 7.5 MG, QW
     Route: 065
  4. ITRACONAZOLE. [Interacting]
     Active Substance: ITRACONAZOLE
     Indication: CUTANEOUS SPOROTRICHOSIS
     Dosage: 100 MG, BID
     Route: 065
  5. GLIMEPIRIDE. [Interacting]
     Active Substance: GLIMEPIRIDE
     Indication: DIABETES MELLITUS
     Dosage: 2 MG, QD
     Route: 065

REACTIONS (12)
  - Vomiting [Unknown]
  - Chronic granulomatous disease [Unknown]
  - Influenza like illness [Unknown]
  - Malaise [Unknown]
  - Papule [Unknown]
  - Acanthosis [Unknown]
  - Pyrexia [Unknown]
  - Skin hyperplasia [Unknown]
  - Drug intolerance [Unknown]
  - Cutaneous sporotrichosis [Unknown]
  - Drug interaction [Unknown]
  - Skin ulcer [Unknown]
